FAERS Safety Report 8054422-0 (Version None)
Quarter: 2012Q1

REPORT INFORMATION
  Report Type: 
  Country: None (occurrence: None)
  Receive Date: 20120118
  Receipt Date: 20120110
  Transmission Date: 20120608
  Serious: Yes (Hospitalization)
  Sender: FDA-Public Use
  Company Number: PHHY2012FR003022

PATIENT
  Sex: Female

DRUGS (2)
  1. PACLITAXEL [Suspect]
     Indication: LUNG NEOPLASM MALIGNANT
     Route: 042
     Dates: start: 20111114, end: 20111114
  2. PACLITAXEL [Suspect]
     Dates: start: 20111121, end: 20111121

REACTIONS (2)
  - SENSE OF OPPRESSION [None]
  - MALAISE [None]
